FAERS Safety Report 9655450 (Version 2)
Quarter: 2013Q4

REPORT INFORMATION
  Report Type: Spontaneous
  Country: US (occurrence: US)
  Receive Date: 20131029
  Receipt Date: 20131029
  Transmission Date: 20140711
  Serious: No
  Sender: FDA-Public Use
  Company Number: US-PURDUE-USA-2012-0088524

PATIENT
  Age: 76 Year
  Sex: Male
  Weight: 54.6 kg

DRUGS (1)
  1. OXYCODONE HYDROCHLORIDE (SIMILAR TO NDA 22-272) [Suspect]
     Indication: PAIN
     Dosage: UNK UNK, Q12H
     Route: 048
     Dates: start: 20120305, end: 20120306

REACTIONS (3)
  - Drug hypersensitivity [Unknown]
  - Rash generalised [Recovered/Resolved]
  - Pruritus [Recovered/Resolved]
